FAERS Safety Report 8500850-6 (Version None)
Quarter: 2012Q3

REPORT INFORMATION
  Report Type: 
  Country: None (occurrence: None)
  Receive Date: 20120710
  Receipt Date: 20120628
  Transmission Date: 20120928
  Serious: No
  Sender: FDA-Public Use
  Company Number: US-ASTRAZENECA-2012SE44336

PATIENT
  Sex: Female

DRUGS (6)
  1. BLOOD PRESSURE MEDICATION [Concomitant]
     Indication: BLOOD PRESSURE ABNORMAL
  2. SEROQUEL [Suspect]
     Route: 048
  3. SEROQUEL [Suspect]
     Indication: BIPOLAR DISORDER
     Route: 048
  4. SUBOXONE [Concomitant]
  5. NEURONTIN [Concomitant]
  6. SIMVALTA [Concomitant]

REACTIONS (2)
  - FIBROMYALGIA [None]
  - MOVEMENT DISORDER [None]
